FAERS Safety Report 13398729 (Version 1)
Quarter: 2017Q2

REPORT INFORMATION
  Report Type: Spontaneous
  Country: US (occurrence: US)
  Receive Date: 20170403
  Receipt Date: 20170403
  Transmission Date: 20170830
  Serious: No
  Sender: FDA-Public Use
  Company Number: US-ASTRAZENECA-2017SE33615

PATIENT
  Sex: Male
  Weight: 106.6 kg

DRUGS (4)
  1. FENOFIBRATE. [Concomitant]
     Active Substance: FENOFIBRATE
     Route: 048
  2. QUINAPRIL. [Concomitant]
     Active Substance: QUINAPRIL
     Route: 048
  3. BABY ASPIRIN [Concomitant]
     Active Substance: ASPIRIN
     Route: 048
  4. BRILINTA [Suspect]
     Active Substance: TICAGRELOR
     Indication: STENT PLACEMENT
     Route: 048
     Dates: start: 201701

REACTIONS (2)
  - Headache [Not Recovered/Not Resolved]
  - Toothache [Not Recovered/Not Resolved]
